FAERS Safety Report 6266369-0 (Version None)
Quarter: 2009Q3

REPORT INFORMATION
  Report Type: 
  Country: None (occurrence: None)
  Receive Date: 20090713
  Receipt Date: 20090708
  Transmission Date: 20100115
  Serious: No
  Sender: FDA-Public Use
  Company Number: US-B.I. PHARMACEUTICALS,INC./RIDGEFIELD-2009-BP-07759BP

PATIENT
  Sex: Male

DRUGS (4)
  1. FLOMAX [Suspect]
     Indication: BENIGN PROSTATIC HYPERPLASIA
     Dosage: 0.4 MG
     Route: 048
     Dates: start: 20090301
  2. FLOMAX [Suspect]
     Indication: NOCTURIA
  3. AVODART [Concomitant]
     Indication: BENIGN PROSTATIC HYPERPLASIA
  4. SYNTHROID [Concomitant]
     Indication: HYPOTHYROIDISM
     Dosage: 44 MCG

REACTIONS (4)
  - BLOOD PRESSURE DECREASED [None]
  - HYPOAESTHESIA [None]
  - MUSCLE SPASMS [None]
  - NOCTURIA [None]
